FAERS Safety Report 19161485 (Version 1)
Quarter: 2021Q2

REPORT INFORMATION
  Report Type: Spontaneous
  Country: US (occurrence: US)
  Receive Date: 20210420
  Receipt Date: 20210420
  Transmission Date: 20210717
  Serious: No
  Sender: FDA-Public Use
  Company Number: None

PATIENT
  Age: 68 Year
  Sex: Female
  Weight: 107.1 kg

DRUGS (7)
  1. COMPOUNDED HORMONE [Concomitant]
  2. NEXIUM [Concomitant]
     Active Substance: ESOMEPRAZOLE MAGNESIUM
  3. BP MEDS [Concomitant]
  4. BABY ASPIRIN [Concomitant]
     Active Substance: ASPIRIN
  5. SYNTHROID [Concomitant]
     Active Substance: LEVOTHYROXINE SODIUM
  6. XOPENEX INHALER [Concomitant]
  7. HYDRALAZINE [Suspect]
     Active Substance: HYDRALAZINE HYDROCHLORIDE
     Indication: PRODUCT USED FOR UNKNOWN INDICATION
     Dosage: ?          QUANTITY:270 TABLET(S);?
     Route: 048
     Dates: start: 20210415, end: 20210420

REACTIONS (13)
  - Vision blurred [None]
  - Nausea [None]
  - Dizziness [None]
  - Tremor [None]
  - Insomnia [None]
  - Heart rate increased [None]
  - Headache [None]
  - Decreased appetite [None]
  - Feeling cold [None]
  - Fatigue [None]
  - Periorbital swelling [None]
  - Rash [None]
  - Chest pain [None]

NARRATIVE: CASE EVENT DATE: 20210415
